FAERS Safety Report 7867759-2 (Version None)
Quarter: 2011Q4

REPORT INFORMATION
  Report Type: 
  Country: None (occurrence: None)
  Receive Date: 20111028
  Receipt Date: 20111024
  Transmission Date: 20120403
  Serious: Yes (Hospitalization)
  Sender: FDA-Public Use
  Company Number: CN-ABBOTT-11P-035-0865006-00

PATIENT
  Age: 62 Year
  Sex: Female

DRUGS (3)
  1. DEPAKENE [Suspect]
     Dosage: GASTRO-RESISTANT, ONCE
     Route: 048
     Dates: start: 20111012, end: 20111012
  2. OLANZAPINE [Concomitant]
     Indication: PRODUCT USED FOR UNKNOWN INDICATION
     Dates: start: 20100101, end: 20100101
  3. DEPAKENE [Suspect]
     Indication: DEPRESSION
     Dosage: 50 DOSAGE FORM; GASTRO-RESISTANT; ONCE
     Route: 048
     Dates: start: 20111012, end: 20111012

REACTIONS (4)
  - SUICIDE ATTEMPT [None]
  - CONFUSIONAL STATE [None]
  - INTENTIONAL OVERDOSE [None]
  - CHILLS [None]
